FAERS Safety Report 7349999-4 (Version None)
Quarter: 2011Q1

REPORT INFORMATION
  Report Type: 
  Country: None (occurrence: None)
  Receive Date: 20110314
  Receipt Date: 20110304
  Transmission Date: 20110831
  Serious: Yes (Other)
  Sender: FDA-Public Use
  Company Number: CA-ROCHE-764108

PATIENT
  Sex: Female

DRUGS (3)
  1. TRAZODONE [Concomitant]
  2. SYNTHROID [Concomitant]
  3. BEVACIZUMAB [Suspect]
     Indication: BREAST CANCER
     Dosage: EXPIRATION DATE OF BATCH LOT NO. B6008B010: SEP 2012.
     Route: 042
     Dates: start: 20101222

REACTIONS (2)
  - TUMOUR MARKER INCREASED [None]
  - INFLUENZA LIKE ILLNESS [None]
